FAERS Safety Report 18707975 (Version 1)
Quarter: 2021Q1

REPORT INFORMATION
  Report Type: Spontaneous
  Country: US (occurrence: US)
  Receive Date: 20210106
  Receipt Date: 20210106
  Transmission Date: 20210419
  Serious: Yes (Death, Hospitalization, Other)
  Sender: FDA-Public Use
  Company Number: US-PURDUE-USA-2020-0175422

PATIENT
  Age: 46 Year
  Sex: Male
  Weight: 68 kg

DRUGS (3)
  1. HYDROCODONE BITARTRATE (SIMILAR TO NDA 206627) [Suspect]
     Active Substance: HYDROCODONE BITARTRATE
     Indication: PRODUCT USED FOR UNKNOWN INDICATION
     Dosage: 10 MG, UNK
     Route: 048
  2. HYDROCODONE BITARTRATE (SIMILAR TO NDA 206627) [Suspect]
     Active Substance: HYDROCODONE BITARTRATE
     Dosage: 500 MG, UNK
     Route: 048
  3. MSIR [Suspect]
     Active Substance: MORPHINE SULFATE
     Indication: PRODUCT USED FOR UNKNOWN INDICATION
     Dosage: 30 MG, Q4? 6H PRN
     Route: 048

REACTIONS (24)
  - Confusional state [Unknown]
  - Headache [Unknown]
  - Seizure [Unknown]
  - Gait disturbance [Unknown]
  - Disturbance in attention [Unknown]
  - Product prescribing issue [Unknown]
  - Anxiety [Unknown]
  - Mood swings [Unknown]
  - Loss of consciousness [Unknown]
  - Crying [Unknown]
  - Gun shot wound [Fatal]
  - Substance abuse [Unknown]
  - Fall [Unknown]
  - Speech disorder [Unknown]
  - Tremor [Unknown]
  - Agitation [Unknown]
  - Antisocial behaviour [Unknown]
  - Hallucination [Unknown]
  - Vision blurred [Unknown]
  - Disorientation [Unknown]
  - Tinnitus [Unknown]
  - Somnambulism [Unknown]
  - Drug dependence [Unknown]
  - Depression [Unknown]

NARRATIVE: CASE EVENT DATE: 20180103
